FAERS Safety Report 7715876-X (Version None)
Quarter: 2011Q3

REPORT INFORMATION
  Report Type: 
  Country: None (occurrence: None)
  Receive Date: 20110829
  Receipt Date: 20110829
  Transmission Date: 20111222
  Serious: Yes (Life-Threatening, Hospitalization)
  Sender: FDA-Public Use
  Company Number: None

PATIENT
  Age: 40 Year
  Sex: Female
  Weight: 72.574 kg

DRUGS (5)
  1. OCELLA -28 DAY REGIMEN- [Concomitant]
     Indication: CONTRACEPTION
     Dosage: 3MG/.03MG
     Route: 048
     Dates: start: 20080501, end: 20110725
  2. NASONEX [Concomitant]
  3. COUMADIN [Concomitant]
     Route: 048
  4. DROSPIRENONE AND ETHINYL ESTRADIOL [Suspect]
     Indication: CONTRACEPTION
     Dosage: UNKNOWN -TOOK1 PILL DAILY-
     Route: 048
     Dates: start: 20110501, end: 20110610
  5. BYSTOLIC [Concomitant]
     Route: 048

REACTIONS (3)
  - PULMONARY EMBOLISM [None]
  - PULMONARY INFARCTION [None]
  - DEEP VEIN THROMBOSIS [None]
